FAERS Safety Report 6282477-2 (Version None)
Quarter: 2009Q3

REPORT INFORMATION
  Report Type: 
  Country: None (occurrence: None)
  Receive Date: 20090721
  Receipt Date: 20090721
  Transmission Date: 20100115
  Serious: Yes (Other)
  Sender: FDA-Public Use
  Company Number: None

PATIENT
  Age: 50 Year
  Sex: Female
  Weight: 55.7924 kg

DRUGS (2)
  1. CYMBALTA [Suspect]
     Indication: DEPRESSION
     Dosage: 60MG DAILY PO
     Route: 048
     Dates: start: 20090319, end: 20090630
  2. CYMBALTA [Suspect]
     Indication: FIBROMYALGIA
     Dosage: 60MG DAILY PO
     Route: 048
     Dates: start: 20090319, end: 20090630

REACTIONS (7)
  - DIARRHOEA [None]
  - DIZZINESS [None]
  - DRUG WITHDRAWAL SYNDROME [None]
  - HEADACHE [None]
  - IRRITABILITY [None]
  - NAUSEA [None]
  - NERVOUS SYSTEM DISORDER [None]
